FAERS Safety Report 12202132 (Version 1)
Quarter: 2016Q1

REPORT INFORMATION
  Report Type: Spontaneous
  Country: ES (occurrence: ES)
  Receive Date: 20160322
  Receipt Date: 20160322
  Transmission Date: 20160526
  Serious: Yes (Other)
  Sender: FDA-Public Use
  Company Number: ES-DEP_13861_2016

PATIENT
  Age: 38 Year
  Sex: Female

DRUGS (2)
  1. NALOXONE HYDROCHLORIDE W/OXYCODONE HYDROCHLORIDE [Concomitant]
     Dosage: DF
  2. PALEXIA [Suspect]
     Active Substance: TAPENTADOL HYDROCHLORIDE
     Indication: PRODUCT USED FOR UNKNOWN INDICATION
     Route: 048

REACTIONS (2)
  - Muscle rigidity [Recovered/Resolved]
  - Seizure [Recovered/Resolved]
